FAERS Safety Report 7042393-5 (Version None)
Quarter: 2010Q4

REPORT INFORMATION
  Report Type: 
  Country: None (occurrence: None)
  Receive Date: 20101013
  Receipt Date: 20100209
  Transmission Date: 20110411
  Serious: No
  Sender: FDA-Public Use
  Company Number: US-ASTRAZENECA-2010SE05832

PATIENT
  Age: 620 Month
  Sex: Female
  Weight: 90.7 kg

DRUGS (5)
  1. SYMBICORT [Suspect]
     Indication: CHRONIC OBSTRUCTIVE PULMONARY DISEASE
     Dosage: 160/4.5 UG 2 PUFFS IN AM AND 2 PUFFS IN PM
     Route: 055
     Dates: start: 20080101, end: 20100101
  2. SYMBICORT [Suspect]
     Dosage: 160/4.5 UG 2 PUFFS IN AM
     Route: 055
     Dates: start: 20100101
  3. DETROL [Concomitant]
  4. SINGULAIR [Concomitant]
  5. UNKNOWN BP MED [Concomitant]

REACTIONS (3)
  - CHEST DISCOMFORT [None]
  - DYSPNOEA [None]
  - INTENTIONAL DRUG MISUSE [None]
